FAERS Safety Report 9409557 (Version 3)
Quarter: 2013Q3

REPORT INFORMATION
  Report Type: Spontaneous
  Country: US (occurrence: US)
  Receive Date: 20130719
  Receipt Date: 20130923
  Transmission Date: 20140515
  Serious: Yes (Other)
  Sender: FDA-Public Use
  Company Number: US-PFIZER INC-2013211250

PATIENT
  Age: 72 Year
  Sex: Female
  Weight: 97.51 kg

DRUGS (7)
  1. ENBREL [Suspect]
     Indication: RHEUMATOID ARTHRITIS
     Dosage: 50 MG, WEEKLY
     Route: 058
     Dates: start: 2002, end: 2011
  2. CELEBREX [Suspect]
     Indication: ADENOMATOUS POLYPOSIS COLI
     Dosage: 200 MG, BID
     Route: 048
  3. CELEBREX [Suspect]
     Indication: ARTHRALGIA
  4. PREMARIN [Suspect]
     Dosage: 0.45 MG, 1X/DAY
     Dates: end: 201211
  5. REMICADE [Suspect]
     Indication: RHEUMATOID ARTHRITIS
     Dosage: UNK
     Route: 042
     Dates: start: 2000, end: 2002
  6. CIMZIA [Suspect]
     Indication: RHEUMATOID ARTHRITIS
     Dosage: 200 MG, 2X/WEEK
     Route: 058
     Dates: start: 2011, end: 2012
  7. METHOTREXATE [Concomitant]
     Dosage: UNK
     Dates: start: 2000, end: 2012

REACTIONS (3)
  - B-cell lymphoma [Unknown]
  - Pain [Unknown]
  - Arthralgia [Unknown]
